FAERS Safety Report 24363910 (Version 1)
Quarter: 2024Q3

REPORT INFORMATION
  Report Type: Report from Study
  Country: US (occurrence: US)
  Receive Date: 20240925
  Receipt Date: 20240925
  Transmission Date: 20241016
  Serious: Yes (Death, Hospitalization)
  Sender: PFIZER
  Company Number: US-PFIZER INC-PV202400036732

PATIENT
  Age: 78 Year
  Sex: Female

DRUGS (2)
  1. VYNDAMAX [Suspect]
     Active Substance: TAFAMIDIS
     Indication: Cardiac amyloidosis
     Dosage: 61 MG, 1X/DAY
     Route: 048
     Dates: start: 20240307
  2. VYNDAMAX [Suspect]
     Active Substance: TAFAMIDIS
     Dosage: 61 MG, 1X/DAY
     Route: 048
     Dates: start: 20240307

REACTIONS (4)
  - Death [Fatal]
  - Spinal osteoarthritis [Not Recovered/Not Resolved]
  - Paraesthesia [Unknown]
  - Ear discomfort [Recovered/Resolved with Sequelae]

NARRATIVE: CASE EVENT DATE: 20240312
